FAERS Safety Report 19475764 (Version 2)
Quarter: 2024Q2

REPORT INFORMATION
  Report Type: Spontaneous
  Country: DE (occurrence: DE)
  Receive Date: 20210630
  Receipt Date: 20240403
  Transmission Date: 20240716
  Serious: Yes (Hospitalization)
  Sender: FDA-Public Use
  Company Number: DE-ADRED-06498-01

PATIENT
  Age: 70 Year
  Sex: Female
  Weight: 59 kg

DRUGS (15)
  1. GABAPENTIN [Suspect]
     Active Substance: GABAPENTIN
     Indication: Headache
     Dosage: UNK
     Route: 048
  2. ACYCLOVIR [Concomitant]
     Active Substance: ACYCLOVIR
     Indication: Product used for unknown indication
     Dosage: 800 MILLIGRAM (1-0-1-0)
     Route: 048
  3. ASCORBIC ACID\CALCIUM [Concomitant]
     Active Substance: ASCORBIC ACID\CALCIUM
     Indication: Product used for unknown indication
     Dosage: ON DIALYSIS-FREE DAYS
     Route: 048
  4. BISOPROLOL [Concomitant]
     Active Substance: BISOPROLOL\BISOPROLOL FUMARATE
     Indication: Product used for unknown indication
     Dosage: 5 MILLIGRAM (1-0-1-0)
     Route: 048
  5. MOXONIDINE [Concomitant]
     Active Substance: MOXONIDINE
     Indication: Product used for unknown indication
     Dosage: 0.3 MILLIGRAM (0-0-1-0)
     Route: 048
  6. CINACALCET [Concomitant]
     Active Substance: CINACALCET
     Indication: Product used for unknown indication
     Dosage: 30 MILLIGRAM (4 TIMES A WEEK)
     Route: 048
  7. DIHYDRALAZINE SULFATE [Concomitant]
     Active Substance: DIHYDRALAZINE SULFATE
     Indication: Product used for unknown indication
     Dosage: 25 MILLIGRAM (UP TO 4 TIMES A DAY DEPENDING ON THE RR)
     Route: 048
  8. FOLIC ACID;IRON;NICOTINAMIDE;PYRIDOXINE;RIBOFLAVIN;THIAMINE;ZINC [Concomitant]
     Indication: Product used for unknown indication
     Dosage: UNK (ON DAYS OFF DIALYSIS)
     Route: 048
  9. SIMVASTATIN [Concomitant]
     Active Substance: SIMVASTATIN
     Indication: Product used for unknown indication
     Dosage: 40 MILLIGRAM (0-0-1-0)
     Route: 048
  10. ASPIRIN [Concomitant]
     Active Substance: ASPIRIN
     Indication: Product used for unknown indication
     Dosage: 100 MILLIGRAM (0-0-1-0)
     Route: 048
  11. ZINC OXIDE [Concomitant]
     Active Substance: ZINC OXIDE
     Indication: Product used for unknown indication
     Dosage: UNK (2 TO 3 TIMES A DAY)
     Route: 003
  12. OMEPRAZOLE [Concomitant]
     Active Substance: OMEPRAZOLE
     Indication: Product used for unknown indication
     Dosage: 40 MILLIGRAM (1-0-1-0)
     Route: 048
  13. ENOXAPARIN [Concomitant]
     Active Substance: ENOXAPARIN
     Indication: Product used for unknown indication
     Dosage: 6000 INTERNATIONAL UNIT (0-0-1-0, SOLUTION FOR INJECTION / INFUSION)
     Route: 058
  14. CANDESARTAN [Concomitant]
     Active Substance: CANDESARTAN
     Indication: Product used for unknown indication
     Dosage: 16 MILLIGRAM (1-0-0-0)
     Route: 048
  15. CALCIUM CITRATE [Concomitant]
     Active Substance: CALCIUM CITRATE
     Indication: Product used for unknown indication
     Dosage: 950 MILLIGRAM  (PAUSED)
     Route: 048

REACTIONS (9)
  - Dizziness [Unknown]
  - Headache [Unknown]
  - Language disorder [Unknown]
  - Herpes zoster [Unknown]
  - Dysaesthesia [Unknown]
  - Language disorder [Unknown]
  - Nausea [Unknown]
  - Sepsis [Unknown]
  - Encephalitis herpes [Unknown]
